FAERS Safety Report 18181938 (Version 1)
Quarter: 2020Q3

REPORT INFORMATION
  Report Type: Report from Study
  Country: US (occurrence: US)
  Receive Date: 20200821
  Receipt Date: 20200821
  Transmission Date: 20201103
  Serious: Yes (Other)
  Sender: FDA-Public Use
  Company Number: US-BAYER-2020-153135

PATIENT
  Age: 78 Year
  Sex: Male

DRUGS (1)
  1. ADEMPAS [Suspect]
     Active Substance: RIOCIGUAT
     Indication: PULMONARY HYPERTENSION
     Dosage: 1.0 MG, TID
     Route: 048
     Dates: start: 20200725

REACTIONS (3)
  - Orthostatic hypotension [None]
  - Suture insertion [Not Recovered/Not Resolved]
  - Syncope [None]

NARRATIVE: CASE EVENT DATE: 20200725
